FAERS Safety Report 7649198-2 (Version None)
Quarter: 2011Q3

REPORT INFORMATION
  Report Type: 
  Country: None (occurrence: None)
  Receive Date: 20110726
  Receipt Date: 20110711
  Transmission Date: 20111222
  Serious: Yes (Death)
  Sender: FDA-Public Use
  Company Number: FK201101354

PATIENT
  Age: 10 Year
  Sex: Female

DRUGS (4)
  1. ZOSYN [Concomitant]
  2. VANCOMYCIN [Concomitant]
  3. LINEZOLID [Concomitant]
  4. METHYLPREDNISOLONE [Suspect]
     Indication: STEROID THERAPY
     Dosage: 0.2 MG/KG, PER DOS, BID, INTRAVENOUS (NOT OTHERWISE SPECIFIED)
     Route: 042

REACTIONS (11)
  - MULTI-ORGAN FAILURE [None]
  - RENAL FAILURE [None]
  - HYPOTENSION [None]
  - PYREXIA [None]
  - POOR PERIPHERAL CIRCULATION [None]
  - ABDOMINAL DISTENSION [None]
  - SERUM SICKNESS [None]
  - ANAEMIA [None]
  - CARDIAC FAILURE [None]
  - ZYGOMYCOSIS [None]
  - LIVER TENDERNESS [None]
